FAERS Safety Report 17150352 (Version 1)
Quarter: 2019Q4

REPORT INFORMATION
  Report Type: Spontaneous
  Country: US (occurrence: US)
  Receive Date: 20191120
  Receipt Date: 20191120
  Transmission Date: 20200122
  Serious: No
  Sender: FDA-Public Use
  Company Number: None

PATIENT
  Sex: Female

DRUGS (1)
  1. DALFAMPRIDINE ER 10 MG AUROBINDO PHARMA [Suspect]
     Active Substance: DALFAMPRIDINE
     Indication: MULTIPLE SCLEROSIS
     Route: 048
     Dates: start: 201905

REACTIONS (7)
  - Asthenia [None]
  - Abdominal discomfort [None]
  - Balance disorder [None]
  - Abdominal pain upper [None]
  - Dizziness [None]
  - Paraesthesia [None]
  - Flushing [None]
